FAERS Safety Report 5941456-2 (Version None)
Quarter: 2008Q4

REPORT INFORMATION
  Report Type: 
  Country: None (occurrence: None)
  Receive Date: 20081031
  Receipt Date: 20081020
  Transmission Date: 20090506
  Serious: Yes (Life-Threatening)
  Sender: FDA-Public Use
  Company Number: 100#03#2008-05383

PATIENT
  Age: 85 Year
  Sex: Female

DRUGS (2)
  1. DICLOFENAC SODIUM [Suspect]
     Indication: GOUT
     Dosage: 75 MG TWICE DAILY ORAL
     Route: 048
     Dates: start: 20080921
  2. CARMEN ACE (LERCANIDIPINE, ENALAPRIL) [Suspect]
     Indication: HYPERTENSION
     Dosage: 20 MG ONCE DAILY ORAL
     Route: 048
     Dates: end: 20080921

REACTIONS (2)
  - OEDEMA MOUTH [None]
  - TONGUE OEDEMA [None]
